FAERS Safety Report 8982740 (Version 1)
Quarter: 2012Q4

REPORT INFORMATION
  Report Type: 
  Country: US (occurrence: US)
  Receive Date: 20121212
  Receipt Date: 20121212
  Transmission Date: 20130627
  Serious: Yes (Death)
  Sender: FDA-Public Use
  Company Number: US-ASTELLAS-1133119

PATIENT
  Sex: Female

DRUGS (2)
  1. TARCEVA [Suspect]
     Indication: MALIGNANT RESPIRATORY TRACT NEOPLASM
     Route: 048
     Dates: start: 20110103
  2. TARCEVA [Suspect]
     Route: 048
     Dates: start: 20110613, end: 20120619

REACTIONS (2)
  - Disease progression [Fatal]
  - Rash [Unknown]
